FAERS Safety Report 4483381-2 (Version None)
Quarter: 2004Q4

REPORT INFORMATION
  Report Type: 
  Country: None (occurrence: None)
  Receive Date: 20041020
  Receipt Date: 20041007
  Transmission Date: 20050328
  Serious: Yes (Other)
  Sender: FDA-Public Use
  Company Number: HQWYE241824SEP04

PATIENT
  Age: 33 Year
  Sex: Female

DRUGS (1)
  1. DIAMOX [Suspect]
     Indication: DYSTONIA
     Dosage: 250 MG 2X PER 1 DAY
     Dates: start: 19970101

REACTIONS (7)
  - HYPERCHLORAEMIA [None]
  - HYPOKALAEMIA [None]
  - HYPONATRAEMIA [None]
  - METABOLIC ACIDOSIS [None]
  - NEPHROLITHIASIS [None]
  - RENAL COLIC [None]
  - WEIGHT DECREASED [None]
